FAERS Safety Report 9668433 (Version 2)
Quarter: 2013Q4

REPORT INFORMATION
  Report Type: Spontaneous
  Country: FI (occurrence: FI)
  Receive Date: 20131105
  Receipt Date: 20131105
  Transmission Date: 20140711
  Serious: Yes (Other)
  Sender: FDA-Public Use
  Company Number: FI-AMGEN-FINSP2013073825

PATIENT
  Age: 55 Year
  Sex: Female
  Weight: 46 kg

DRUGS (3)
  1. MIMPARA [Suspect]
     Indication: HYPERPARATHYROIDISM SECONDARY
     Dosage: 30 MG, QD
     Route: 048
     Dates: start: 2010, end: 20121107
  2. ZEMPLAR [Concomitant]
     Indication: HYPERPARATHYROIDISM SECONDARY
     Dosage: 1 MUG, QD
     Route: 048
     Dates: start: 20110817
  3. RENVELA [Concomitant]
     Indication: HYPERPARATHYROIDISM SECONDARY
     Dosage: 800 MG, UNK
     Route: 048
     Dates: start: 20100330

REACTIONS (7)
  - Sarcoidosis [Unknown]
  - Diabetes mellitus [Unknown]
  - Blood parathyroid hormone increased [Unknown]
  - Hypercalcaemia [Unknown]
  - Abdominal pain [Recovered/Resolved]
  - Nausea [Recovered/Resolved]
  - Vomiting [Unknown]
